FAERS Safety Report 25349136 (Version 1)
Quarter: 2025Q2

REPORT INFORMATION
  Report Type: Spontaneous
  Country: US (occurrence: US)
  Receive Date: 20250522
  Receipt Date: 20250522
  Transmission Date: 20250717
  Serious: No
  Sender: SANOFI AVENTIS
  Company Number: US-SA-2025SA145323

PATIENT
  Sex: Male

DRUGS (14)
  1. DUPIXENT [Suspect]
     Active Substance: DUPILUMAB
     Indication: Dermatitis allergic
     Dosage: 300 MG, QOW
     Route: 058
  2. CLOPIDOGREL [Concomitant]
     Active Substance: CLOPIDOGREL BISULFATE
  3. CYANOCOBALAMIN [Concomitant]
     Active Substance: CYANOCOBALAMIN
  4. FOLIC ACID [Concomitant]
     Active Substance: FOLIC ACID
  5. ROSUVASTATIN [Concomitant]
     Active Substance: ROSUVASTATIN
  6. VTAMA [Concomitant]
     Active Substance: TAPINAROF
  7. ZETIA [Concomitant]
     Active Substance: EZETIMIBE
  8. AMLODIPINE [Concomitant]
     Active Substance: AMLODIPINE BESYLATE
  9. BETAMETHASONE [Concomitant]
     Active Substance: BETAMETHASONE
  10. BUPROPION HYDROCHLORIDE [Concomitant]
     Active Substance: BUPROPION HYDROCHLORIDE
  11. CLOTRIMAZOLE [Concomitant]
     Active Substance: CLOTRIMAZOLE
  12. ESCITALOPRAM [Concomitant]
     Active Substance: ESCITALOPRAM OXALATE
  13. PREDNISONE [Concomitant]
     Active Substance: PREDNISONE
  14. VALSARTAN [Concomitant]
     Active Substance: VALSARTAN

REACTIONS (1)
  - Inappropriate schedule of product administration [Unknown]
